FAERS Safety Report 10051988 (Version 2)
Quarter: 2014Q2

REPORT INFORMATION
  Report Type: Spontaneous
  Country: US (occurrence: US)
  Receive Date: 20140402
  Receipt Date: 20140425
  Transmission Date: 20141212
  Serious: Yes (Hospitalization)
  Sender: FDA-Public Use
  Company Number: US-BIOGENIDEC-2014BI028166

PATIENT
  Age: 46 Year
  Sex: Male

DRUGS (17)
  1. TECFIDERA [Suspect]
     Indication: MULTIPLE SCLEROSIS
     Route: 048
     Dates: start: 20130709
  2. AMOXICILLIN [Concomitant]
  3. ANDROGEL PUMP [Concomitant]
  4. B12-ACTIVE [Concomitant]
  5. CALCIUM 1000 + D [Concomitant]
  6. CENTRUM SILVER [Concomitant]
  7. CLONAZEPAM [Concomitant]
  8. FISH OIL [Concomitant]
  9. FUROSEMIDE [Concomitant]
  10. LUNESTA [Concomitant]
  11. NARDIL [Concomitant]
  12. POTASSIUM CHLORIDE CRYS ER [Concomitant]
  13. VIAGRA [Concomitant]
  14. VITAMIN D3 [Concomitant]
  15. VITAMIN  E COMPLEX [Concomitant]
  16. ZIANA [Concomitant]
  17. ZOLPIDEM TARTRATE ER [Concomitant]

REACTIONS (3)
  - Clostridium difficile infection [Unknown]
  - Flushing [Unknown]
  - Rash [Unknown]
